FAERS Safety Report 20985828 (Version 1)
Quarter: 2022Q2

REPORT INFORMATION
  Report Type: Report from Study
  Country: US (occurrence: US)
  Receive Date: 20220621
  Receipt Date: 20220621
  Transmission Date: 20220721
  Serious: Yes (Other)
  Sender: FDA-Public Use
  Company Number: US-BRISTOL-MYERS SQUIBB COMPANY-2022-059214

PATIENT
  Age: 52 Year
  Sex: Male
  Weight: 70.306 kg

DRUGS (1)
  1. POMALYST [Suspect]
     Active Substance: POMALIDOMIDE
     Indication: Plasma cell myeloma
     Dosage: BY MOUTH
     Route: 065
     Dates: start: 20190219

REACTIONS (1)
  - Foot fracture [Unknown]
